FAERS Safety Report 16002282 (Version 1)
Quarter: 2019Q1

REPORT INFORMATION
  Report Type: Report from Study
  Country: US (occurrence: US)
  Receive Date: 20190225
  Receipt Date: 20190225
  Transmission Date: 20190418
  Serious: Yes (Hospitalization, Other)
  Sender: FDA-Public Use
  Company Number: US-TAKEDA-2019TUS008408

PATIENT
  Age: 60 Year
  Sex: Male

DRUGS (1)
  1. PONATINIB [Suspect]
     Active Substance: PONATINIB
     Indication: ACUTE MYELOID LEUKAEMIA
     Dosage: 45 MILLIGRAM, QD
     Route: 048

REACTIONS (8)
  - Soft tissue sarcoma [Unknown]
  - Heart rate increased [Unknown]
  - Hepatic enzyme increased [Unknown]
  - Chronic myeloid leukaemia recurrent [Unknown]
  - Sciatica [Unknown]
  - Blood pressure increased [Unknown]
  - Dry eye [Unknown]
  - Off label use [Unknown]

NARRATIVE: CASE EVENT DATE: 201807
